FAERS Safety Report 6114611-9 (Version None)
Quarter: 2009Q1

REPORT INFORMATION
  Report Type: 
  Country: None (occurrence: None)
  Receive Date: 20090311
  Receipt Date: 20080130
  Transmission Date: 20090719
  Serious: Yes (Other)
  Sender: FDA-Public Use
  Company Number: US200802000924

PATIENT
  Age: 36 Year
  Sex: Male

DRUGS (3)
  1. GEMZAR [Suspect]
     Indication: PSEUDOLYMPHOMA
     Dosage: 800 MG/M2 OTHER UNK; 1000 MG/M2, OTHER , UNK
  2. NAVELBINE [Concomitant]
  3. DOXIL [Concomitant]

REACTIONS (1)
  - PULMONARY TOXICITY [None]
